FAERS Safety Report 20703422 (Version 1)
Quarter: 2022Q2

REPORT INFORMATION
  Report Type: Spontaneous
  Country: CA (occurrence: CA)
  Receive Date: 20220413
  Receipt Date: 20220413
  Transmission Date: 20220720
  Serious: Yes (Other)
  Sender: FDA-Public Use
  Company Number: CA-NOVOPROD-906147

PATIENT
  Age: 71 Year
  Sex: Male
  Weight: 111 kg

DRUGS (2)
  1. OZEMPIC [Suspect]
     Active Substance: SEMAGLUTIDE
     Dosage: 0.5 MG, QW
     Route: 058
     Dates: start: 20220220, end: 20220320
  2. OZEMPIC [Suspect]
     Active Substance: SEMAGLUTIDE
     Indication: Type 2 diabetes mellitus
     Dosage: 0.25 MG, QW
     Route: 058
     Dates: start: 20220115

REACTIONS (2)
  - Pain in jaw [Recovering/Resolving]
  - Hyperaesthesia teeth [Recovering/Resolving]

NARRATIVE: CASE EVENT DATE: 20220301
